FAERS Safety Report 6147886-0 (Version None)
Quarter: 2009Q2

REPORT INFORMATION
  Report Type: 
  Country: None (occurrence: None)
  Receive Date: 20090408
  Receipt Date: 20090402
  Transmission Date: 20091009
  Serious: Yes (Other)
  Sender: FDA-Public Use
  Company Number: US-PFIZER INC-2006151242

PATIENT
  Sex: Male
  Weight: 91 kg

DRUGS (2)
  1. CELEBREX [Suspect]
     Indication: ARTHRALGIA
     Dosage: 200 MG, 1X/DAY
     Route: 048
     Dates: start: 20040501, end: 20061101
  2. VITAMINS [Concomitant]
     Route: 048

REACTIONS (5)
  - BLEPHAROSPASM [None]
  - BLOOD CHOLESTEROL INCREASED [None]
  - FACIAL PALSY [None]
  - HYPOAESTHESIA [None]
  - TRANSIENT ISCHAEMIC ATTACK [None]
